FAERS Safety Report 10070404 (Version 1)
Quarter: 2014Q2

REPORT INFORMATION
  Report Type: Spontaneous
  Country: LT (occurrence: LT)
  Receive Date: 20140410
  Receipt Date: 20140410
  Transmission Date: 20141212
  Serious: Yes (Other)
  Sender: FDA-Public Use
  Company Number: LT-BAYER-2014-051027

PATIENT
  Sex: Female

DRUGS (2)
  1. ASPIRIN 100 MG [Suspect]
  2. FRAXIPARINE [Suspect]
     Dosage: UNK

REACTIONS (2)
  - Caesarean section [None]
  - Maternal exposure during pregnancy [None]
